FAERS Safety Report 13064386 (Version 1)
Quarter: 2016Q4

REPORT INFORMATION
  Report Type: Spontaneous
  Country: US (occurrence: US)
  Receive Date: 20161223
  Receipt Date: 20161223
  Transmission Date: 20170207
  Serious: No
  Sender: FDA-Public Use
  Company Number: None

PATIENT
  Age: 34 Year
  Sex: Female

DRUGS (1)
  1. BOTOX [Suspect]
     Active Substance: ONABOTULINUMTOXINA
     Indication: MIGRAINE WITHOUT AURA
     Dosage: 155 UNITS Q3MO INTRAMUSCULARLY
     Route: 030
     Dates: start: 20160610

REACTIONS (2)
  - Visual impairment [None]
  - Neck pain [None]

NARRATIVE: CASE EVENT DATE: 20160611
